FAERS Safety Report 7150858-0 (Version None)
Quarter: 2010Q4

REPORT INFORMATION
  Report Type: 
  Country: None (occurrence: None)
  Receive Date: 20101124
  Receipt Date: 20101117
  Transmission Date: 20110411
  Serious: Yes (Other)
  Sender: FDA-Public Use
  Company Number: ACO_20444_2010

PATIENT
  Age: 46 Year
  Sex: Female
  Weight: 113.4 kg

DRUGS (11)
  1. AMPYRA [Suspect]
     Indication: GAIT DISTURBANCE
     Dosage: 10 MG, BID, ORAL
     Route: 048
     Dates: start: 20100715, end: 20100805
  2. AMPYRA [Suspect]
     Indication: MULTIPLE SCLEROSIS
     Dosage: 10 MG, BID, ORAL
     Route: 048
     Dates: start: 20100715, end: 20100805
  3. KEPPRA [Concomitant]
  4. EFFEXOR [Concomitant]
  5. LASIX [Concomitant]
  6. SPIRONOLACTONE [Concomitant]
  7. PRAVACHOL [Concomitant]
  8. THYROID PILL [Concomitant]
  9. DETROL [Concomitant]
  10. REBIF [Concomitant]
  11. PROVIGIL [Concomitant]

REACTIONS (4)
  - CYSTITIS KLEBSIELLA [None]
  - INAPPROPRIATE SCHEDULE OF DRUG ADMINISTRATION [None]
  - MUSCLE SPASMS [None]
  - PAIN [None]
